FAERS Safety Report 22322084 (Version 1)
Quarter: 2023Q2

REPORT INFORMATION
  Report Type: Spontaneous
  Country: US (occurrence: None)
  Receive Date: 20230516
  Receipt Date: 20230516
  Transmission Date: 20230722
  Serious: No
  Sender: FDA-Public Use
  Company Number: US-Hikma Pharmaceuticals USA Inc.-US-H14001-22-01957

PATIENT
  Sex: Female

DRUGS (1)
  1. PREDNISONE [Suspect]
     Active Substance: PREDNISONE
     Indication: Product used for unknown indication
     Dosage: UNKNOWN
     Route: 065

REACTIONS (7)
  - Weight decreased [Unknown]
  - Alopecia [Unknown]
  - Drug interaction [Unknown]
  - Amnesia [Unknown]
  - Gait inability [Unknown]
  - Feeding disorder [Unknown]
  - Speech disorder [Unknown]
